FAERS Safety Report 8388745-2 (Version None)
Quarter: 2012Q2

REPORT INFORMATION
  Report Type: 
  Country: None (occurrence: None)
  Receive Date: 20120528
  Receipt Date: 20120515
  Transmission Date: 20120825
  Serious: Yes (Death)
  Sender: FDA-Public Use
  Company Number: FR-BRISTOL-MYERS SQUIBB COMPANY-16624595

PATIENT
  Sex: Female

DRUGS (3)
  1. ETOPOSIDE [Suspect]
     Indication: OVARIAN GERM CELL CANCER
  2. CISPLATIN [Suspect]
     Indication: OVARIAN GERM CELL CANCER
  3. BLEOMYCIN SULFATE [Suspect]
     Indication: OVARIAN GERM CELL CANCER

REACTIONS (2)
  - PREGNANCY [None]
  - PULMONARY EMBOLISM [None]
